FAERS Safety Report 23459023 (Version 3)
Quarter: 2024Q1

REPORT INFORMATION
  Report Type: Spontaneous
  Country: DE (occurrence: DE)
  Receive Date: 20240131
  Receipt Date: 20240301
  Transmission Date: 20240409
  Serious: Yes (Other)
  Sender: FDA-Public Use
  Company Number: DE-LUNDBECK-DKLU3070697

PATIENT
  Age: 51 Year
  Sex: Male
  Weight: 118 kg

DRUGS (29)
  1. CANDESARTAN [Interacting]
     Active Substance: CANDESARTAN
     Indication: Hypertension
     Dosage: MORNING 8MG, AFTERNOON 4MG
     Route: 065
  2. MELATONIN [Interacting]
     Active Substance: MELATONIN
     Indication: Product used for unknown indication
     Dosage: UNK
     Route: 065
  3. NEBIVOLOL [Interacting]
     Active Substance: NEBIVOLOL
     Indication: Hypertension
     Dosage: 2.5 MILLIGRAM, ONCE A DAY (MORNING AND NIGHT)
     Route: 065
  4. NEBIVOLOL [Interacting]
     Active Substance: NEBIVOLOL
     Dosage: 3 MILLIGRAM, ONCE A DAY (2.5MG MORNING AND NIGHT)
     Route: 065
  5. NEBIVOLOL [Interacting]
     Active Substance: NEBIVOLOL
     Dosage: 2.5 MILLIGRAM, TWO TIMES A DAY
     Route: 065
  6. PROPRANOLOL HYDROCHLORIDE [Interacting]
     Active Substance: PROPRANOLOL HYDROCHLORIDE
     Indication: Tremor
     Dosage: UNK
     Route: 065
  7. RABEPRAZOLE SODIUM [Interacting]
     Active Substance: RABEPRAZOLE SODIUM
     Indication: Gastric pH increased
     Dosage: 20 MILLIGRAM, ONCE A DAY (MORNING)
     Route: 065
  8. RAMIPRIL [Interacting]
     Active Substance: RAMIPRIL
     Indication: Hypertension
     Dosage: UNK
     Route: 065
  9. SILDENAFIL [Interacting]
     Active Substance: SILDENAFIL
     Indication: Product used for unknown indication
     Dosage: UNK (DOSE AND FREQUENCY UNKNOWN)
     Route: 065
  10. CLOZAPINE [Interacting]
     Active Substance: CLOZAPINE
     Indication: Product used for unknown indication
     Dosage: UNK
     Route: 065
  11. CHLORPROTHIXENE [Interacting]
     Active Substance: CHLORPROTHIXENE
     Indication: Insomnia
     Dosage: 100 MILLIGRAM, ONCE A DAY (AT BEDTIME FOR SLEEP)
     Route: 065
  12. ZYPREXA [Interacting]
     Active Substance: OLANZAPINE
     Indication: Product used for unknown indication
     Dosage: UNK
     Route: 065
  13. SEROQUEL [Interacting]
     Active Substance: QUETIAPINE FUMARATE
     Indication: Insomnia
     Dosage: 25-50MG IF NECESSARY TO CALM DOWN
     Route: 065
  14. SEROQUEL [Interacting]
     Active Substance: QUETIAPINE FUMARATE
     Indication: Sedation
     Dosage: 100 MILLIGRAM, ONCE A DAY 9AT BEDTIME FOR SLEEP)
     Route: 065
  15. PROMETHAZINE HYDROCHLORIDE [Interacting]
     Active Substance: PROMETHAZINE HYDROCHLORIDE
     Indication: Sedation
     Dosage: 37.5 MILLIGRAM
     Route: 065
  16. PROMETHAZINE HYDROCHLORIDE [Interacting]
     Active Substance: PROMETHAZINE HYDROCHLORIDE
     Dosage: 25 MILLIGRAM
     Route: 065
  17. PROMETHAZINE HYDROCHLORIDE [Interacting]
     Active Substance: PROMETHAZINE HYDROCHLORIDE
     Dosage: 38 MILLIGRAM
     Route: 065
  18. FLUPENTIXOL [Interacting]
     Active Substance: FLUPENTIXOL
     Indication: Psychotic disorder
     Dosage: MORNING: 5MG? EVENING: 6 MG? NIGHT: 2MG
     Route: 065
  19. CARIPRAZINE [Interacting]
     Active Substance: CARIPRAZINE
     Indication: Psychotic disorder
     Dosage: UNK
     Route: 065
  20. TAVOR (LORAZEPAM) [Interacting]
     Active Substance: LORAZEPAM
     Indication: Sedation
     Dosage: 1 MILLIGRAM ( IF NECESSARY FOR SEDATION/ANXIETY)
     Route: 065
  21. TAVOR (LORAZEPAM) [Interacting]
     Active Substance: LORAZEPAM
     Indication: Anxiety
     Dosage: UNK
     Route: 065
  22. ZELDOX [Interacting]
     Active Substance: ZIPRASIDONE
     Indication: Sedation
     Dosage: UNK
     Route: 065
  23. BROMAZEPAM [Interacting]
     Active Substance: BROMAZEPAM
     Indication: Anxiety
     Dosage: 3 MILLIGRAM (IF NECESSARY FOR SEDATION/ANXIETY)
     Route: 065
  24. BROMAZEPAM [Interacting]
     Active Substance: BROMAZEPAM
     Indication: Sedation
  25. ABILIFY [Interacting]
     Active Substance: ARIPIPRAZOLE
     Indication: Product used for unknown indication
     Dosage: UNK
     Route: 065
  26. NAPROXEN [Interacting]
     Active Substance: NAPROXEN
     Indication: Arthralgia
     Dosage: 500 MILLIGRAM AS NECESSARY( IF NECESSARY FOR KNEE PAIN)
     Route: 065
  27. NAPROXEN [Interacting]
     Active Substance: NAPROXEN
     Indication: Anxiety
  28. RISPERDAL [Interacting]
     Active Substance: RISPERIDONE
     Indication: Psychotic disorder
     Dosage: MORNING 4MG, NIGHT 5MG
     Route: 065
  29. RISPERDAL [Interacting]
     Active Substance: RISPERIDONE
     Indication: Sedation
     Dosage: 2 MILLIGRAM, ONCE A DAY
     Route: 065

REACTIONS (11)
  - Suicidal ideation [Unknown]
  - Blood pressure increased [Unknown]
  - Brain fog [Unknown]
  - Condition aggravated [Unknown]
  - Dizziness [Unknown]
  - Flatulence [Unknown]
  - Impaired work ability [Unknown]
  - Parkinsonism [Unknown]
  - Somnolence [Unknown]
  - Tremor [Unknown]
  - Drug interaction [Unknown]
